FAERS Safety Report 25606004 (Version 1)
Quarter: 2025Q3

REPORT INFORMATION
  Report Type: Spontaneous
  Country: MA (occurrence: MA)
  Receive Date: 20250725
  Receipt Date: 20250725
  Transmission Date: 20251020
  Serious: Yes (Hospitalization, Other)
  Sender: RANBAXY
  Company Number: MA-SUN PHARMACEUTICAL INDUSTRIES LTD-2025R1-518280

PATIENT
  Age: 7 Year
  Sex: Female

DRUGS (1)
  1. BETAMETHASONE [Suspect]
     Active Substance: BETAMETHASONE
     Indication: Rash pruritic
     Route: 065

REACTIONS (4)
  - Product administration error [Unknown]
  - Cushing^s syndrome [Unknown]
  - Intentional product misuse [Unknown]
  - Corneal abscess [Unknown]
